FAERS Safety Report 7977797-7 (Version None)
Quarter: 2011Q4

REPORT INFORMATION
  Report Type: 
  Country: None (occurrence: None)
  Receive Date: 20111214
  Receipt Date: 20111130
  Transmission Date: 20120403
  Serious: No
  Sender: FDA-Public Use
  Company Number: US-AMGEN-USASP2011047269

PATIENT
  Age: 63 Year
  Sex: Female
  Weight: 107.48 kg

DRUGS (14)
  1. FLONASE [Concomitant]
     Dosage: 0.05 MG/INH, QD
  2. NAPROSYN [Concomitant]
     Dosage: 375 MG, BID
  3. DIOVAN HCT [Concomitant]
     Dosage: UNK UNK, QD
  4. MULTIVITAMIN                       /00097801/ [Concomitant]
     Dosage: UNK UNK, QD
  5. RESTASIS [Concomitant]
     Dosage: 12 HOURS EYEDROPS ONCE DAILY
  6. COREG CR [Concomitant]
     Dosage: 20 MG, QD IN THE MORNING
  7. EVOXAC [Concomitant]
     Dosage: 30 MG, TID
  8. PATADAY [Concomitant]
     Dosage: DROP(S) ONCE A DAY AS NEEDED
  9. ENBREL [Suspect]
     Indication: RHEUMATOID ARTHRITIS
     Dosage: 50 MG, QWK
     Dates: start: 20110830
  10. ZYRTEC [Concomitant]
     Indication: HYPERSENSITIVITY
     Dosage: 10 MG, QD
  11. PLAQUENIL [Concomitant]
     Dosage: 200 MG, BID
  12. PRILOSEC [Concomitant]
     Dosage: 20 MG, QD
  13. WELLBUTRIN XL [Concomitant]
     Dosage: 150 MG, QD
  14. MEDROL [Concomitant]
     Dosage: MG (TABLET) SIG- 1 AS DIRECTED

REACTIONS (5)
  - NASAL CONGESTION [None]
  - RHINORRHOEA [None]
  - SINUSITIS [None]
  - LICHEN PLANUS [None]
  - HYPERSENSITIVITY [None]
